FAERS Safety Report 4308799-X (Version None)
Quarter: 2004Q1

REPORT INFORMATION
  Report Type: 
  Country: None (occurrence: None)
  Receive Date: 20040301
  Receipt Date: 20040301
  Transmission Date: 20041129
  Serious: Yes (Hospitalization)
  Sender: FDA-Public Use
  Company Number: None

PATIENT
  Age: 94 Year
  Sex: Female
  Weight: 49 kg

DRUGS (13)
  1. WARFARIN SODIUM [Suspect]
     Indication: ATRIAL FIBRILLATION
     Dosage: 2 MG PO QD CHRONIC
     Route: 048
  2. AMIODARONE HCL [Concomitant]
  3. REMINYL [Concomitant]
  4. TIAZAC [Concomitant]
  5. ZOLOFT [Concomitant]
  6. DOCUSATE [Concomitant]
  7. LASIX [Concomitant]
  8. DURAGESIC [Concomitant]
  9. POTASSIUM [Concomitant]
  10. LEVOTHYROXINE SODIUM [Concomitant]
  11. PROTONIX [Concomitant]
  12. . [Concomitant]
  13. TYLENOL (CAPLET) [Concomitant]

REACTIONS (3)
  - CONTUSION [None]
  - FAECAL OCCULT BLOOD POSITIVE [None]
  - INTERNATIONAL NORMALISED RATIO INCREASED [None]
